FAERS Safety Report 25047425 (Version 3)
Quarter: 2025Q2

REPORT INFORMATION
  Report Type: Spontaneous
  Country: CA (occurrence: CA)
  Receive Date: 20250306
  Receipt Date: 20250415
  Transmission Date: 20250716
  Serious: Yes (Life-Threatening, Hospitalization, Other)
  Sender: SANOFI AVENTIS
  Company Number: CA-SA-2025SA066096

PATIENT
  Age: 5 Year
  Sex: Male
  Weight: 18 kg

DRUGS (28)
  1. LEMTRADA [Suspect]
     Active Substance: ALEMTUZUMAB
     Indication: Hodgkin^s disease
     Route: 042
     Dates: start: 20240415, end: 20240417
  2. BUSULFAN [Suspect]
     Active Substance: BUSULFAN
     Indication: Hodgkin^s disease
     Dosage: 90 MG, QD
     Route: 042
     Dates: start: 20240418, end: 20240421
  3. FLUDARABINE PHOSPHATE [Suspect]
     Active Substance: FLUDARABINE PHOSPHATE
     Indication: Hodgkin^s disease
     Route: 042
     Dates: start: 20240416, end: 20240420
  4. ACYCLOVIR [Concomitant]
     Active Substance: ACYCLOVIR
     Dates: start: 20240412, end: 20240515
  5. AMLODIPINE [Concomitant]
     Active Substance: AMLODIPINE BESYLATE
     Dates: start: 20240412, end: 20240515
  6. BETAMETHASONE [Concomitant]
     Active Substance: BETAMETHASONE
     Route: 061
     Dates: start: 20240412, end: 20240515
  7. CEFTAZIDIME [Concomitant]
     Active Substance: CEFTAZIDIME
     Dates: start: 20240412, end: 20240515
  8. CETIRIZINE [Concomitant]
     Active Substance: CETIRIZINE HYDROCHLORIDE
     Dates: start: 20240412, end: 20240515
  9. FLUCONAZOLE [Concomitant]
     Active Substance: FLUCONAZOLE
     Dates: start: 20240412, end: 20240515
  10. FUROSEMIDE [Concomitant]
     Active Substance: FUROSEMIDE
     Dates: start: 20240412, end: 20240515
  11. GRANISETRON [Concomitant]
     Active Substance: GRANISETRON
     Dates: start: 20240412, end: 20240515
  12. GRANULOCYTE COLONY-STIMULATING FACTOR NOS [Concomitant]
     Active Substance: GRANULOCYTE COLONY-STIMULATING FACTOR NOS
     Dates: start: 20240412, end: 20240515
  13. HYDROXYZINE [Concomitant]
     Active Substance: HYDROXYZINE HYDROCHLORIDE
     Dates: start: 20240412, end: 20240515
  14. LEVETIRACETAM [Concomitant]
     Active Substance: LEVETIRACETAM
     Dates: start: 20240412, end: 20240515
  15. LORAZEPAM [Concomitant]
     Active Substance: LORAZEPAM
     Dates: start: 20240412, end: 20240515
  16. MAGNESIUM [Concomitant]
     Active Substance: MAGNESIUM
     Dates: start: 20240412, end: 20240515
  17. MELATONIN [Concomitant]
     Active Substance: MELATONIN
     Dates: start: 20240412, end: 20240415
  18. MYCAMINE [Concomitant]
     Active Substance: MICAFUNGIN SODIUM
     Route: 042
     Dates: start: 20240417, end: 20240515
  19. MYCOPHENOLATE MOFETIL [Concomitant]
     Active Substance: MYCOPHENOLATE MOFETIL
     Dates: start: 20240412, end: 20240515
  20. OLANZAPINE [Concomitant]
     Active Substance: OLANZAPINE
     Dates: start: 20240412, end: 20240515
  21. ONDANSETRON [Concomitant]
     Active Substance: ONDANSETRON
     Dates: start: 20240412, end: 20240517
  22. PIPERACILLIN SODIUM\TAZOBACTAM SODIUM [Concomitant]
     Active Substance: PIPERACILLIN SODIUM\TAZOBACTAM SODIUM
     Dates: start: 20240412, end: 20240515
  23. POLYETHYLENE GLYCOLS [Concomitant]
     Active Substance: POLYETHYLENE GLYCOLS
     Dates: start: 20240412, end: 20240515
  24. SIROLIMUS [Concomitant]
     Active Substance: SIROLIMUS
     Dates: start: 20240412, end: 20240515
  25. TACROLIMUS [Concomitant]
     Active Substance: TACROLIMUS
     Dates: start: 20240412, end: 20240515
  26. TRANEXAMIC ACID [Concomitant]
     Active Substance: TRANEXAMIC ACID
     Dates: start: 20240412, end: 20240515
  27. URSODIOL [Concomitant]
     Active Substance: URSODIOL
     Dates: start: 20240412, end: 20240517
  28. VANCOMYCIN [Concomitant]
     Active Substance: VANCOMYCIN
     Dates: start: 20240412, end: 20240515

REACTIONS (2)
  - Mucosal inflammation [Recovered/Resolved]
  - Aplastic anaemia [Recovered/Resolved]

NARRATIVE: CASE EVENT DATE: 20240430
